FAERS Safety Report 13847041 (Version 1)
Quarter: 2017Q3

REPORT INFORMATION
  Report Type: Spontaneous
  Country: US (occurrence: US)
  Receive Date: 20170808
  Receipt Date: 20170808
  Transmission Date: 20171127
  Serious: No
  Sender: FDA-Public Use
  Company Number: US-IMPAX LABORATORIES, INC-2016-IPXL-02443

PATIENT
  Sex: Female

DRUGS (3)
  1. OXYMORPHONE HYDROCHLORIDE ER [Suspect]
     Active Substance: OXYMORPHONE HYDROCHLORIDE
     Indication: PAIN
     Dosage: 40 MG, BEDTIME ON AN EMPTY STOMACH
     Route: 048
     Dates: start: 20161021
  2. OXYCODONE [Concomitant]
     Active Substance: OXYCODONE
     Indication: PAIN
     Dosage: 30 MG, UNK
     Route: 065
  3. GABAPENTIN. [Concomitant]
     Active Substance: GABAPENTIN
     Indication: PRODUCT USED FOR UNKNOWN INDICATION
     Dosage: 300 MG, UNK
     Route: 065

REACTIONS (3)
  - Product solubility abnormal [Unknown]
  - Sedation complication [Unknown]
  - Drug effect incomplete [Unknown]
